FAERS Safety Report 7568853-6 (Version None)
Quarter: 2011Q2

REPORT INFORMATION
  Report Type: 
  Country: None (occurrence: None)
  Receive Date: 20110623
  Receipt Date: 20110616
  Transmission Date: 20111010
  Serious: Yes (Hospitalization)
  Sender: FDA-Public Use
  Company Number: US-B.I. PHARMACEUTICALS,INC./RIDGEFIELD-2011-BP-02027BP

PATIENT
  Age: 86 Year
  Sex: Female

DRUGS (9)
  1. PRADAXA [Suspect]
     Indication: ATRIAL FIBRILLATION
     Dosage: 300 MG
     Route: 048
     Dates: start: 20110112
  2. METOPROLOL TARTRATE [Concomitant]
     Indication: HYPERTENSION
     Dosage: 200 MG
     Route: 048
  3. VITAMIN TAB [Concomitant]
  4. DULCOLAX [Suspect]
     Indication: CONSTIPATION
     Dosage: 200 MG
     Route: 048
     Dates: start: 20110112, end: 20110112
  5. ASPIRIN [Concomitant]
     Indication: ATRIAL FIBRILLATION
  6. ALPRAZOLAM [Concomitant]
     Indication: ANXIETY
  7. ENALAPRIL MALEATE [Concomitant]
     Indication: HYPERTENSION
     Dosage: 30 MG
     Route: 048
  8. DIGOXIN [Concomitant]
     Indication: ATRIAL FIBRILLATION
  9. TYLENOL-500 [Concomitant]
     Indication: PAIN

REACTIONS (4)
  - ADVERSE DRUG REACTION [None]
  - FATIGUE [None]
  - RECTAL HAEMORRHAGE [None]
  - ARTHRALGIA [None]
